FAERS Safety Report 7230494-8 (Version None)
Quarter: 2011Q1

REPORT INFORMATION
  Report Type: 
  Country: None (occurrence: None)
  Receive Date: 20110118
  Receipt Date: 20110104
  Transmission Date: 20110831
  Serious: Yes (Other)
  Sender: FDA-Public Use
  Company Number: PHHY2011CA01009

PATIENT

DRUGS (3)
  1. ALISKIREN [Suspect]
  2. CALCIUM CHANNEL BLOCKERS [Concomitant]
  3. BETA BLOCKING AGENTS [Concomitant]

REACTIONS (2)
  - SLEEP APNOEA SYNDROME [None]
  - NO ADVERSE EVENT [None]
